FAERS Safety Report 17262478 (Version 4)
Quarter: 2020Q1

REPORT INFORMATION
  Report Type: Spontaneous
  Country: US (occurrence: US)
  Receive Date: 20200113
  Receipt Date: 20200304
  Transmission Date: 20200409
  Serious: No
  Sender: FDA-Public Use
  Company Number: US-PFIZER INC-2020011501

PATIENT
  Age: 71 Year
  Sex: Female
  Weight: 91 kg

DRUGS (2)
  1. XELJANZ XR [Suspect]
     Active Substance: TOFACITINIB CITRATE
     Indication: POLYMYALGIA RHEUMATICA
  2. XELJANZ XR [Suspect]
     Active Substance: TOFACITINIB CITRATE
     Indication: RHEUMATOID ARTHRITIS
     Dosage: 11 MG, 1X/DAY
     Route: 048
     Dates: start: 20191022, end: 201911

REACTIONS (9)
  - Ear disorder [Unknown]
  - Gingival disorder [Recovered/Resolved]
  - Genital herpes [Recovered/Resolved]
  - Lymphadenopathy [Unknown]
  - Infection [Unknown]
  - Drug ineffective [Unknown]
  - Toothache [Recovered/Resolved]
  - Gingival pain [Recovered/Resolved]
  - Tooth disorder [Recovered/Resolved]

NARRATIVE: CASE EVENT DATE: 2019
